FAERS Safety Report 17428438 (Version 2)
Quarter: 2020Q1

REPORT INFORMATION
  Report Type: Spontaneous
  Country: US (occurrence: US)
  Receive Date: 20200218
  Receipt Date: 20200220
  Transmission Date: 20200409
  Serious: Yes (Other)
  Sender: FDA-Public Use
  Company Number: US-ALKERMES INC.-ALK-2020-000718

PATIENT
  Age: 28 Year
  Sex: Female

DRUGS (3)
  1. VIVITROL [Suspect]
     Active Substance: NALTREXONE
     Indication: DRUG DEPENDENCE
     Dosage: 380 MG, QMO
     Route: 030
     Dates: start: 20200202
  2. VIVITROL [Suspect]
     Active Substance: NALTREXONE
     Dosage: 380 MG, QMO
     Route: 030
     Dates: start: 201901, end: 201901
  3. FENTANYL. [Concomitant]
     Active Substance: FENTANYL
     Indication: ANAESTHESIA
     Dosage: UNK

REACTIONS (6)
  - Device dislocation [Not Recovered/Not Resolved]
  - Jaw fracture [Unknown]
  - Surgery [Unknown]
  - Product prescribing error [Unknown]
  - Hysterectomy [Unknown]
  - Physical assault [Recovered/Resolved]

NARRATIVE: CASE EVENT DATE: 201905
